FAERS Safety Report 11277867 (Version 1)
Quarter: 2015Q3

REPORT INFORMATION
  Report Type: Spontaneous
  Country: US (occurrence: None)
  Receive Date: 20150715
  Receipt Date: 20150715
  Transmission Date: 20151125
  Serious: No
  Sender: FDA-Public Use
  Company Number: DL2015-0657

PATIENT
  Age: 29 Year
  Sex: Female

DRUGS (3)
  1. MISOPROSTOL TABLETS, 200 MCG [Suspect]
     Active Substance: MISOPROSTOL
     Dates: start: 20150313
  2. MIFEPRISTONE TABLETS, 200 MG (DANCO LABS) [Suspect]
     Active Substance: MIFEPRISTONE
     Indication: ABORTION INDUCED
     Route: 048
     Dates: start: 20150312
  3. AZYTIROMYCIN [Concomitant]

REACTIONS (2)
  - Endometritis [None]
  - Pain [None]

NARRATIVE: CASE EVENT DATE: 20150314
